FAERS Safety Report 4472973-2 (Version None)
Quarter: 2004Q4

REPORT INFORMATION
  Report Type: 
  Country: None (occurrence: None)
  Receive Date: 20041013
  Receipt Date: 20040922
  Transmission Date: 20050328
  Serious: Yes (Life-Threatening, Hospitalization)
  Sender: FDA-Public Use
  Company Number: US-ROCHE-381307

PATIENT
  Age: 21 Year
  Sex: Female
  Weight: 49.2 kg

DRUGS (2)
  1. CELLCEPT [Suspect]
     Route: 048
     Dates: start: 20020730, end: 20040910
  2. PREDNISONE [Suspect]
     Route: 048
     Dates: start: 20011224

REACTIONS (2)
  - INTESTINAL ISCHAEMIA [None]
  - INTESTINAL PERFORATION [None]
